FAERS Safety Report 21986192 (Version 2)
Quarter: 2024Q3

REPORT INFORMATION
  Report Type: Other
  Country: CA (occurrence: CA)
  Receive Date: 20230213
  Receipt Date: 20240802
  Transmission Date: 20241017
  Serious: Yes (Other)
  Sender: PFIZER
  Company Number: CA-PFIZER INC-202300062221

PATIENT

DRUGS (17)
  1. AZITHROMYCIN [Suspect]
     Active Substance: AZITHROMYCIN
     Indication: Ureaplasma infection
     Dosage: 1 G, 1X/DAY
     Route: 064
  2. AZITHROMYCIN [Suspect]
     Active Substance: AZITHROMYCIN
     Indication: Antibiotic therapy
  3. DEXTROSE [Suspect]
     Active Substance: DEXTROSE\DEXTROSE MONOHYDRATE
     Dosage: UNK
     Route: 064
  4. DEXTROSE [Suspect]
     Active Substance: DEXTROSE\DEXTROSE MONOHYDRATE
     Dosage: UNK
  5. AMPICILLIN [Suspect]
     Active Substance: AMPICILLIN
     Indication: Ureaplasma infection
     Dosage: 1 G, 4X/DAY
     Route: 064
  6. AMPICILLIN [Suspect]
     Active Substance: AMPICILLIN
     Indication: Antibiotic therapy
     Dosage: UNK
  7. AMPICILLIN [Suspect]
     Active Substance: AMPICILLIN
     Dosage: 1 G, 4X/DAY
  8. ATOSIBAN [Suspect]
     Active Substance: ATOSIBAN
     Dosage: UNK
     Route: 064
  9. ATOSIBAN [Suspect]
     Active Substance: ATOSIBAN
     Dosage: UNK
  10. BETAMETHASONE [Suspect]
     Active Substance: BETAMETHASONE\BETAMETHASONE DIPROPIONATE
     Dosage: 12 MG, DAILY
     Route: 064
  11. BETAMETHASONE [Suspect]
     Active Substance: BETAMETHASONE\BETAMETHASONE DIPROPIONATE
     Dosage: 12 MG, DAILY
  12. GENTAMICIN [Suspect]
     Active Substance: GENTAMICIN
     Indication: Ureaplasma infection
     Dosage: 80 MG, 3X/DAY
     Route: 064
  13. GENTAMICIN [Suspect]
     Active Substance: GENTAMICIN
     Indication: Antibiotic therapy
  14. AZITHROMYCIN [Suspect]
     Active Substance: AZITHROMYCIN
     Indication: Ureaplasma infection
     Dosage: 1 G, DAILY
  15. AZITHROMYCIN [Suspect]
     Active Substance: AZITHROMYCIN
     Indication: Antibiotic therapy
     Dosage: UNK, UNK
  16. GENTAMICIN SULFATE [Suspect]
     Active Substance: GENTAMICIN SULFATE
     Indication: Ureaplasma infection
     Dosage: UNK
  17. GENTAMICIN SULFATE [Suspect]
     Active Substance: GENTAMICIN SULFATE
     Indication: Antibiotic therapy
     Dosage: 80 MG, 3X/DAY

REACTIONS (2)
  - Maternal exposure during pregnancy [Unknown]
  - Premature baby [Unknown]
